FAERS Safety Report 13420376 (Version 1)
Quarter: 2017Q2

REPORT INFORMATION
  Report Type: Report from Study
  Country: None (occurrence: US)
  Receive Date: 20170407
  Receipt Date: 20170407
  Transmission Date: 20170830
  Serious: Yes (Death, Other)
  Sender: FDA-Public Use
  Company Number: US-ABBVIE-17K-163-1933476-00

PATIENT
  Age: 68 Year
  Sex: Female

DRUGS (3)
  1. INVOKANA [Suspect]
     Active Substance: CANAGLIFLOZIN
     Indication: DIABETES MELLITUS
     Route: 065
     Dates: start: 20161209
  2. METFORMIN [Suspect]
     Active Substance: METFORMIN HYDROCHLORIDE
     Indication: DIABETES MELLITUS
     Route: 065
     Dates: end: 201612
  3. HUMIRA [Suspect]
     Active Substance: ADALIMUMAB
     Indication: PSORIASIS
     Route: 058
     Dates: start: 201609

REACTIONS (13)
  - Pancreatitis [Unknown]
  - Acute kidney injury [Unknown]
  - Sepsis [Unknown]
  - Drug intolerance [Unknown]
  - Abdominal infection [Unknown]
  - Flatulence [Unknown]
  - Diabetic ketoacidosis [Unknown]
  - Leukocytosis [Unknown]
  - Urine ketone body present [Unknown]
  - Aneurysm ruptured [Unknown]
  - Metabolic acidosis [Unknown]
  - Cardiac arrest [Fatal]
  - Hypercalcaemia [Unknown]

NARRATIVE: CASE EVENT DATE: 201612
